FAERS Safety Report 5593403-3 (Version None)
Quarter: 2008Q1

REPORT INFORMATION
  Report Type: 
  Country: None (occurrence: None)
  Receive Date: 20080116
  Receipt Date: 20080110
  Transmission Date: 20080703
  Serious: Yes (Hospitalization)
  Sender: FDA-Public Use
  Company Number: CZ-BRISTOL-MYERS SQUIBB COMPANY-13610548

PATIENT
  Age: 63 Year
  Sex: Female
  Weight: 108 kg

DRUGS (8)
  1. IRBESARTAN [Suspect]
     Indication: HYPERTENSION
     Dates: start: 20040810, end: 20051219
  2. WARFARIN SODIUM [Suspect]
     Indication: PROPHYLAXIS
     Dates: end: 20050912
  3. PLACEBO [Suspect]
     Indication: HYPERTENSION
     Dates: start: 20040810, end: 20051219
  4. METOPROLOL [Concomitant]
  5. HYDROCORTISONE [Concomitant]
  6. NOVALGIN [Concomitant]
  7. BERODUAL [Concomitant]
  8. SOLU-MEDROL [Concomitant]

REACTIONS (1)
  - ASTHMA [None]
